FAERS Safety Report 14786199 (Version 1)
Quarter: 2018Q2

REPORT INFORMATION
  Report Type: Spontaneous
  Country: US (occurrence: US)
  Receive Date: 20180420
  Receipt Date: 20180420
  Transmission Date: 20180711
  Serious: Yes (Other)
  Sender: FDA-Public Use
  Company Number: PHEH2018US014397

PATIENT

DRUGS (1)
  1. BUPROPION HCL [Suspect]
     Active Substance: BUPROPION HYDROCHLORIDE
     Indication: PRODUCT USED FOR UNKNOWN INDICATION
     Dosage: 200 MG, QD
     Route: 065

REACTIONS (11)
  - Paraesthesia [Unknown]
  - Hypoaesthesia [Unknown]
  - Headache [Unknown]
  - Facial paralysis [Unknown]
  - Dry mouth [Unknown]
  - Pollakiuria [Unknown]
  - Tick paralysis [Unknown]
  - Dysphagia [Unknown]
  - Polydipsia [Unknown]
  - Memory impairment [Unknown]
  - Palpitations [Unknown]
